FAERS Safety Report 6457871-7 (Version None)
Quarter: 2009Q4

REPORT INFORMATION
  Report Type: 
  Country: None (occurrence: None)
  Receive Date: 20091125
  Receipt Date: 20091113
  Transmission Date: 20100525
  Serious: Yes (Hospitalization)
  Sender: FDA-Public Use
  Company Number: US-ROCHE-668923

PATIENT
  Age: 33 Year
  Sex: Male

DRUGS (1)
  1. PEGASYS [Suspect]
     Indication: HEPATITIS C
     Route: 058

REACTIONS (5)
  - CONVULSION [None]
  - FALL [None]
  - FEELING HOT [None]
  - HEAD INJURY [None]
  - LOSS OF CONSCIOUSNESS [None]
